FAERS Safety Report 21096465 (Version 2)
Quarter: 2022Q4

REPORT INFORMATION
  Report Type: Spontaneous
  Country: JP (occurrence: JP)
  Receive Date: 20220718
  Receipt Date: 20221107
  Transmission Date: 20230112
  Serious: Yes (Hospitalization, Other)
  Sender: FDA-Public Use
  Company Number: JP-DSJP-DSJ-2022-124863AA

PATIENT
  Age: 82 Year
  Sex: Female
  Weight: 53 kg

DRUGS (12)
  1. EDOXABAN TOSYLATE [Suspect]
     Active Substance: EDOXABAN TOSYLATE
     Indication: Atrial fibrillation
     Dosage: 30 MG, QD
     Route: 048
     Dates: start: 20210528, end: 20210716
  2. EDOXABAN TOSYLATE [Suspect]
     Active Substance: EDOXABAN TOSYLATE
     Indication: Acute myocardial infarction
  3. NICORANDIL [Suspect]
     Active Substance: NICORANDIL
     Indication: Acute myocardial infarction
     Dosage: 5 MG, BID
     Route: 048
     Dates: start: 20210528, end: 20210705
  4. ROSUVASTATIN CALCIUM [Suspect]
     Active Substance: ROSUVASTATIN CALCIUM
     Indication: Acute myocardial infarction
     Dosage: 2.5 MG, QD
     Route: 048
     Dates: start: 20210528, end: 20210705
  5. ENALAPRIL MALEATE [Suspect]
     Active Substance: ENALAPRIL MALEATE
     Indication: Acute myocardial infarction
     Dosage: 2.5 MG, QD
     Route: 048
     Dates: start: 20210528, end: 20210705
  6. NEXIUM [Concomitant]
     Active Substance: ESOMEPRAZOLE MAGNESIUM
     Indication: Acute myocardial infarction
     Dosage: 10 MG, QD
     Route: 048
     Dates: end: 20210705
  7. NEXIUM [Concomitant]
     Active Substance: ESOMEPRAZOLE MAGNESIUM
     Dosage: 10 MG, QD
     Route: 048
     Dates: start: 20210730
  8. BENIDIPINE [Concomitant]
     Active Substance: BENIDIPINE
     Dosage: 4 MG, BID
     Route: 048
     Dates: end: 20210705
  9. BENIDIPINE [Concomitant]
     Active Substance: BENIDIPINE
     Dosage: 4 MG, BID
     Route: 048
     Dates: start: 20210722
  10. ETIZOLAM [Concomitant]
     Active Substance: ETIZOLAM
     Dosage: 0.5 MG, BID
     Route: 048
     Dates: end: 20210705
  11. BISOPROLOL FUMARATE [Concomitant]
     Active Substance: BISOPROLOL FUMARATE
     Dosage: 0.625 MG, QD
     Route: 048
     Dates: end: 20210705
  12. BISOPROLOL FUMARATE [Concomitant]
     Active Substance: BISOPROLOL FUMARATE
     Dosage: 0.625 MG, QD
     Route: 048
     Dates: start: 20210826

REACTIONS (3)
  - Drug-induced liver injury [Recovered/Resolved]
  - Hypercholesterolaemia [Unknown]
  - Gastrooesophageal reflux disease [Unknown]

NARRATIVE: CASE EVENT DATE: 20210606
